FAERS Safety Report 11878052 (Version 9)
Quarter: 2016Q3

REPORT INFORMATION
  Report Type: Spontaneous
  Country: GB (occurrence: GB)
  Receive Date: 20151230
  Receipt Date: 20160722
  Transmission Date: 20161109
  Serious: Yes (Other)
  Sender: FDA-Public Use
  Company Number: GB-AMGEN-GBRSP2015111197

PATIENT
  Age: 59 Year
  Sex: Female

DRUGS (7)
  1. XGEVA [Suspect]
     Active Substance: DENOSUMAB
     Indication: PRODUCT USED FOR UNKNOWN INDICATION
     Dosage: UNK
     Route: 065
  2. GEMCITABINE [Concomitant]
     Active Substance: GEMCITABINE\GEMCITABINE HYDROCHLORIDE
  3. PROLIA [Suspect]
     Active Substance: DENOSUMAB
     Indication: PRODUCT USED FOR UNKNOWN INDICATION
     Dosage: UNK
     Route: 058
  4. ORAMORPH [Concomitant]
     Active Substance: MORPHINE SULFATE
     Indication: BREAKTHROUGH PAIN
  5. PARACETAMOL [Concomitant]
     Active Substance: ACETAMINOPHEN
     Dosage: 4 TIMES A DAY
  6. ADCAL D3 [Concomitant]
     Active Substance: CALCIUM CARBONATE\CHOLECALCIFEROL
  7. CARBOPLATIN. [Concomitant]
     Active Substance: CARBOPLATIN

REACTIONS (42)
  - Sleep disorder due to a general medical condition [Unknown]
  - Arthralgia [Unknown]
  - Back pain [Not Recovered/Not Resolved]
  - Vein disorder [Unknown]
  - Mobility decreased [Recovering/Resolving]
  - Tremor [Unknown]
  - Blood pressure increased [Unknown]
  - Sleep disorder [Unknown]
  - Musculoskeletal chest pain [Recovering/Resolving]
  - Bone pain [Unknown]
  - Complication associated with device [Unknown]
  - Decreased appetite [Unknown]
  - Diarrhoea [Unknown]
  - Tooth loss [Unknown]
  - Neuropathy peripheral [Not Recovered/Not Resolved]
  - Asthenia [Unknown]
  - Constipation [Unknown]
  - Blood calcium abnormal [Recovering/Resolving]
  - Dyspnoea exertional [Not Recovered/Not Resolved]
  - Hypoaesthesia [Not Recovered/Not Resolved]
  - Blood calcium increased [Unknown]
  - Fatigue [Unknown]
  - Pain in extremity [Recovering/Resolving]
  - Oral pain [Unknown]
  - Dry skin [Unknown]
  - Chest pain [Unknown]
  - Cough [Not Recovered/Not Resolved]
  - Gingival pain [Unknown]
  - Discomfort [Unknown]
  - Neuralgia [Unknown]
  - Pain [Recovered/Resolved]
  - Nausea [Unknown]
  - Chapped lips [Unknown]
  - Platelet count decreased [Unknown]
  - Pruritus [Unknown]
  - Tooth abscess [Unknown]
  - Dysgeusia [Unknown]
  - Breakthrough pain [Unknown]
  - Dry mouth [Unknown]
  - Upper-airway cough syndrome [Unknown]
  - Rhinorrhoea [Unknown]
  - Catheter site erythema [Unknown]

NARRATIVE: CASE EVENT DATE: 201511
